FAERS Safety Report 24959773 (Version 1)
Quarter: 2025Q1

REPORT INFORMATION
  Report Type: Spontaneous
  Country: US (occurrence: None)
  Receive Date: 20250212
  Receipt Date: 20250212
  Transmission Date: 20250409
  Serious: Yes (Hospitalization)
  Sender: FDA-CTU
  Company Number: None

PATIENT
  Age: 55 Year
  Sex: Female
  Weight: 65.3 kg

DRUGS (1)
  1. PONATINIB [Suspect]
     Active Substance: PONATINIB
     Dates: end: 20240813

REACTIONS (5)
  - Facial nerve disorder [None]
  - Bell^s palsy [None]
  - Herpes zoster oticus [None]
  - Carotid artery stenosis [None]
  - Blister [None]

NARRATIVE: CASE EVENT DATE: 20240814
